FAERS Safety Report 24710938 (Version 2)
Quarter: 2024Q4

REPORT INFORMATION
  Report Type: Spontaneous
  Country: US (occurrence: US)
  Receive Date: 20241209
  Receipt Date: 20241221
  Transmission Date: 20250114
  Serious: Yes (Hospitalization)
  Sender: TEVA
  Company Number: US-TEVA-VS-3272200

PATIENT
  Age: 91 Year
  Sex: Female

DRUGS (1)
  1. VITAMIN B12 [Suspect]
     Active Substance: CYANOCOBALAMIN
     Indication: Distributive shock
     Dosage: HYDROXOCOBALAMIN
     Route: 065

REACTIONS (2)
  - Chromaturia [Unknown]
  - Device leakage [Unknown]
